FAERS Safety Report 16255393 (Version 1)
Quarter: 2019Q2

REPORT INFORMATION
  Report Type: Report from Study
  Country: IT (occurrence: IT)
  Receive Date: 20190430
  Receipt Date: 20190430
  Transmission Date: 20190711
  Serious: Yes (Other)
  Sender: FDA-Public Use
  Company Number: IT-TEVA-2019-IT-1043445

PATIENT
  Age: 66 Year
  Sex: Female

DRUGS (1)
  1. ESOMEPRAZOLE SODIUM. [Suspect]
     Active Substance: ESOMEPRAZOLE SODIUM
     Indication: HYPERCHLORHYDRIA
     Route: 048
     Dates: start: 20181229, end: 20181229

REACTIONS (2)
  - Drug eruption [Recovering/Resolving]
  - Pruritus allergic [Recovering/Resolving]

NARRATIVE: CASE EVENT DATE: 20181229
